FAERS Safety Report 10457987 (Version 3)
Quarter: 2015Q3

REPORT INFORMATION
  Report Type: Report from Study
  Country: BR (occurrence: BR)
  Receive Date: 20140916
  Receipt Date: 20150818
  Transmission Date: 20151125
  Serious: Yes (Hospitalization, Other)
  Sender: FDA-Public Use
  Company Number: PHHY2014BR119708

PATIENT
  Age: 17 Year
  Sex: Female
  Weight: 57 kg

DRUGS (14)
  1. AVALOX [Concomitant]
     Active Substance: MOXIFLOXACIN HYDROCHLORIDE
     Indication: INFECTION PROPHYLAXIS
     Dosage: 1 DF, DAILY
     Route: 048
  2. AZITROMICIN [Concomitant]
     Indication: INFECTION PROPHYLAXIS
     Dosage: 0.5 DF, DAILY
     Route: 065
  3. AZITROMICIN [Concomitant]
     Dosage: 1 DF, QD
     Route: 048
  4. CALCIUM [Concomitant]
     Active Substance: CALCIUM
     Indication: PROPHYLAXIS
     Route: 065
  5. URSACOL [Concomitant]
     Active Substance: URSODIOL
     Indication: LIVER DISORDER
     Dosage: 4 DF, DAILY
     Route: 048
  6. BUSONID [Concomitant]
     Active Substance: BUDESONIDE
     Indication: ANTIFUNGAL PROPHYLAXIS
     Dosage: 1 JET IN EACH NOSTRIL, DAILY
     Route: 065
  7. PULMOZYME [Concomitant]
     Active Substance: DORNASE ALFA
     Indication: PRODUCT USED FOR UNKNOWN INDICATION
     Dosage: 1 INHALATION, QD
     Route: 055
  8. CREON [Concomitant]
     Active Substance: PANCRELIPASE AMYLASE\PANCRELIPASE LIPASE\PANCRELIPASE PROTEASE
     Indication: PANCREATIC ENZYME ABNORMALITY
     Dosage: 12 DF, QD
     Route: 065
  9. BUSONID [Concomitant]
     Active Substance: BUDESONIDE
     Indication: INFECTION PROPHYLAXIS
  10. ZOTEON PODHALER [Suspect]
     Active Substance: TOBRAMYCIN
     Indication: LUNG DISORDER
     Dosage: 3 DF, QHS
     Route: 055
  11. VITAMINS NOS [Concomitant]
     Active Substance: VITAMINS
     Indication: PRODUCT USED FOR UNKNOWN INDICATION
     Dosage: 1 DF, DAILY
     Route: 065
  12. ZOTEON PODHALER [Suspect]
     Active Substance: TOBRAMYCIN
     Indication: CYSTIC FIBROSIS
  13. ZOTEON PODHALER [Suspect]
     Active Substance: TOBRAMYCIN
     Indication: LUNG INFECTION
     Dosage: 50 MG, UNK
     Route: 055
  14. ADEX [Concomitant]
     Indication: VITAMIN SUPPLEMENTATION
     Dosage: 2 DF, QD
     Route: 048

REACTIONS (7)
  - Lung disorder [Unknown]
  - Weight decreased [Recovered/Resolved]
  - Spirometry abnormal [Recovered/Resolved]
  - Off label use [Unknown]
  - Pseudomonas infection [Recovered/Resolved]
  - Fatigue [Recovered/Resolved]
  - Cough [Recovered/Resolved]

NARRATIVE: CASE EVENT DATE: 201503
